FAERS Safety Report 5280621-7 (Version None)
Quarter: 2007Q1

REPORT INFORMATION
  Report Type: 
  Country: None (occurrence: None)
  Receive Date: 20070329
  Receipt Date: 20070321
  Transmission Date: 20070707
  Serious: Yes (Other)
  Sender: FDA-Public Use
  Company Number: 2007UW05587

PATIENT
  Age: 82 Year
  Sex: Male

DRUGS (5)
  1. SEROQUEL [Suspect]
     Indication: DEMENTIA
     Route: 048
     Dates: end: 20070319
  2. SEROQUEL [Suspect]
     Indication: SEDATIVE THERAPY
     Route: 048
     Dates: end: 20070319
  3. ATIVAN [Concomitant]
  4. HALDOL [Concomitant]
  5. CYMBALTA [Concomitant]

REACTIONS (7)
  - AGITATION [None]
  - ANAEMIA [None]
  - BRAIN OEDEMA [None]
  - CEREBRAL HAEMORRHAGE [None]
  - FALL [None]
  - HAEMORRHAGE [None]
  - RENAL FAILURE [None]
